FAERS Safety Report 15688609 (Version 2)
Quarter: 2019Q1

REPORT INFORMATION
  Report Type: Spontaneous
  Country: HU (occurrence: HU)
  Receive Date: 20181205
  Receipt Date: 20190302
  Transmission Date: 20190417
  Serious: Yes (Other)
  Sender: FDA-Public Use
  Company Number: HU-ACCORD-094620

PATIENT
  Age: 63 Year
  Sex: Male

DRUGS (5)
  1. FOLINIC ACID [Suspect]
     Active Substance: LEUCOVORIN
     Indication: RECTAL ADENOCARCINOMA
     Dosage: UNK
     Route: 065
  2. PANITUMUMAB [Suspect]
     Active Substance: PANITUMUMAB
     Indication: RECTAL ADENOCARCINOMA
     Dosage: UNK
     Route: 065
  3. OXALIPLATIN. [Concomitant]
     Active Substance: OXALIPLATIN
     Indication: RECTAL ADENOCARCINOMA
     Dosage: UNK
     Route: 065
  4. 5-FU [Suspect]
     Active Substance: FLUOROURACIL
     Indication: RECTAL ADENOCARCINOMA
     Dosage: UNK
     Route: 065
  5. IRINOTECAN [Suspect]
     Active Substance: IRINOTECAN
     Indication: RECTAL ADENOCARCINOMA
     Dosage: UNK
     Route: 065

REACTIONS (4)
  - Pyrexia [Recovered/Resolved]
  - Metastases to liver [Unknown]
  - Skin reaction [Recovered/Resolved]
  - Hepatic enzyme increased [Unknown]

NARRATIVE: CASE EVENT DATE: 2017
